FAERS Safety Report 7018028-4 (Version None)
Quarter: 2010Q3

REPORT INFORMATION
  Report Type: 
  Country: None (occurrence: None)
  Receive Date: 20100922
  Receipt Date: 20100914
  Transmission Date: 20110219
  Serious: Yes (Other)
  Sender: FDA-Public Use
  Company Number: TRP_07255_2010

PATIENT
  Age: 48 Year
  Sex: Male

DRUGS (2)
  1. RIBAVIRIN [Suspect]
     Indication: HEPATITIS C
     Dosage: (600 MG BID ORAL)
     Route: 048
  2. PEGASYS [Suspect]
     Indication: HEPATITIS C
     Dosage: (18 ?G, SUBCUTANEOUS)
     Route: 058

REACTIONS (4)
  - MACULAR OEDEMA [None]
  - RETINAL DEGENERATION [None]
  - SCOTOMA [None]
  - VISUAL ACUITY REDUCED [None]
